FAERS Safety Report 8074502-3 (Version None)
Quarter: 2012Q1

REPORT INFORMATION
  Report Type: 
  Country: None (occurrence: None)
  Receive Date: 20120126
  Receipt Date: 20120109
  Transmission Date: 20120608
  Serious: Yes (Death, Other)
  Sender: FDA-Public Use
  Company Number: US-MILLENNIUM PHARMACEUTICALS, INC.-2011-01935

PATIENT

DRUGS (4)
  1. ACYCLOVIR [Concomitant]
     Indication: PROPHYLAXIS
  2. DEXAMETHASONE [Suspect]
     Indication: MULTIPLE MYELOMA
     Dosage: 40 MG, CYCLIC
     Route: 048
  3. ACYCLOVIR [Concomitant]
     Indication: HERPES ZOSTER
  4. VELCADE [Suspect]
     Indication: MULTIPLE MYELOMA
     Dosage: 1.3 MG/M2, CYCLIC
     Route: 042

REACTIONS (2)
  - ADRENAL CARCINOMA [None]
  - DEATH [None]
